FAERS Safety Report 13879520 (Version 1)
Quarter: 2017Q3

REPORT INFORMATION
  Report Type: Spontaneous
  Country: CA (occurrence: CA)
  Receive Date: 20170817
  Receipt Date: 20170817
  Transmission Date: 20171127
  Serious: Yes (Disabling, Other)
  Sender: FDA-Public Use
  Company Number: CA-TEVA-796204ACC

PATIENT
  Age: 5 Year
  Sex: Female
  Weight: 17 kg

DRUGS (3)
  1. CYCLOPHOSPHAMIDE. [Concomitant]
     Active Substance: CYCLOPHOSPHAMIDE
  2. CISPLATIN INJECTION [Suspect]
     Active Substance: CISPLATIN
     Indication: MEDULLOBLASTOMA
  3. VINCRISTINE SULFATE INJECTION USP [Concomitant]
     Active Substance: VINCRISTINE SULFATE

REACTIONS (5)
  - Ototoxicity [Not Recovered/Not Resolved]
  - Deafness [Not Recovered/Not Resolved]
  - Deafness bilateral [Not Recovered/Not Resolved]
  - Tinnitus [Not Recovered/Not Resolved]
  - Audiogram abnormal [Not Recovered/Not Resolved]
